FAERS Safety Report 18028523 (Version 2)
Quarter: 2020Q4

REPORT INFORMATION
  Report Type: Spontaneous
  Country: US (occurrence: US)
  Receive Date: 20200715
  Receipt Date: 20201229
  Transmission Date: 20210113
  Serious: Yes (Hospitalization, Disabling, Other)
  Sender: FDA-Public Use
  Company Number: US-TEVA-2020-US-1800537

PATIENT
  Age: 57 Year
  Sex: Female

DRUGS (7)
  1. DOCETAXEL MCKESSON [Suspect]
     Active Substance: DOCETAXEL
     Indication: BREAST CANCER
     Dosage: DOSAGE: 150 MG, NUMBER OF CYCLES: 05, FREQUENCY: EVERY THREE WEEKS.
     Route: 042
     Dates: start: 20150520, end: 20150811
  2. DOCETAXEL SAGENT [Suspect]
     Active Substance: DOCETAXEL
     Indication: BREAST CANCER
     Dosage: DOSAGE: 150 MG, NUMBER OF CYCLES: 05, FREQUENCY: EVERY THREE WEEKS.
     Route: 042
     Dates: start: 20150520, end: 20150811
  3. TAXOTERE [Suspect]
     Active Substance: DOCETAXEL
     Indication: BREAST CANCER
     Dosage: DOSAGE: 150 MG, NUMBER OF CYCLES: 05, FREQUENCY: EVERY THREE WEEKS.
     Route: 042
     Dates: start: 20150520, end: 20150811
  4. CYTOXAN [Suspect]
     Active Substance: CYCLOPHOSPHAMIDE
     Indication: BREAST CANCER
     Dosage: DOSAGE: 1195 MG, NUMBER OF CYCLES: 05, FREQUENCY: EVERY THREE WEEKS.
     Route: 042
     Dates: start: 20150520, end: 20150811
  5. DOCETAXEL WINTHROP [Suspect]
     Active Substance: DOCETAXEL
     Indication: BREAST CANCER
     Dosage: DOSAGE: 150 MG, NUMBER OF CYCLES: 05, FREQUENCY: EVERY THREE WEEKS.
     Route: 042
     Dates: start: 20150520, end: 20150811
  6. DOCETAXEL NORTHSTAR [Suspect]
     Active Substance: DOCETAXEL
     Indication: BREAST CANCER
     Dosage: DOSAGE: 150 MG, NUMBER OF CYCLES: 05, FREQUENCY: EVERY THREE WEEKS.
     Route: 042
     Dates: start: 20150520, end: 20150811
  7. NEULASTA [Suspect]
     Active Substance: PEGFILGRASTIM
     Indication: BREAST CANCER
     Route: 042
     Dates: start: 20150521, end: 20150722

REACTIONS (20)
  - Alopecia areata [Not Recovered/Not Resolved]
  - Nail discolouration [Unknown]
  - Chest discomfort [Recovered/Resolved]
  - Asthenia [Recovering/Resolving]
  - Respiratory tract congestion [Recovering/Resolving]
  - Pyrexia [Recovered/Resolved]
  - Lacrimation increased [Unknown]
  - Ingrown hair [Unknown]
  - Hair colour changes [Not Recovered/Not Resolved]
  - Sneezing [Unknown]
  - Hair texture abnormal [Not Recovered/Not Resolved]
  - Productive cough [Recovering/Resolving]
  - Paraesthesia [Not Recovered/Not Resolved]
  - Nasal congestion [Unknown]
  - Swelling of eyelid [Unknown]
  - Madarosis [Not Recovered/Not Resolved]
  - Groin abscess [Recovered/Resolved]
  - Nausea [Recovered/Resolved]
  - Fatigue [Recovering/Resolving]
  - Rhinorrhoea [Unknown]

NARRATIVE: CASE EVENT DATE: 201505
